FAERS Safety Report 19399149 (Version 2)
Quarter: 2021Q2

REPORT INFORMATION
  Report Type: Spontaneous
  Country: KZ (occurrence: KZ)
  Receive Date: 20210610
  Receipt Date: 20210612
  Transmission Date: 20210717
  Serious: Yes (Disabling, Other)
  Sender: FDA-Public Use
  Company Number: KZ-B.I. PHARMACEUTICALS,INC./RIDGEFIELD-2021-BI-107108

PATIENT
  Age: 60 Year
  Sex: Male
  Weight: 180 kg

DRUGS (1)
  1. PRADAXA [Suspect]
     Active Substance: DABIGATRAN ETEXILATE MESYLATE
     Indication: PERCUTANEOUS CORONARY INTERVENTION
     Dosage: PATIENT DOESN^T REMEMBER THE DOSE
     Route: 048
     Dates: start: 20210528, end: 20210601

REACTIONS (1)
  - Cerebral ischaemia [Unknown]

NARRATIVE: CASE EVENT DATE: 20210601
